FAERS Safety Report 9879402 (Version 2)
Quarter: 2014Q2

REPORT INFORMATION
  Report Type: Report from Study
  Country: CN (occurrence: CN)
  Receive Date: 20140206
  Receipt Date: 20140410
  Transmission Date: 20141212
  Serious: Yes (Hospitalization)
  Sender: FDA-Public Use
  Company Number: PHHY2014CN012813

PATIENT
  Sex: Male

DRUGS (18)
  1. 5-FLUOROURACIL [Suspect]
     Indication: COLON CANCER
     Dosage: 5350 MG, 1 IN 2 WK
     Route: 042
     Dates: start: 20131016, end: 20131028
  2. 5-FLUOROURACIL [Suspect]
     Indication: RECTAL CANCER
     Dates: start: 20131105, end: 20131121
  3. 5-FLUOROURACIL [Suspect]
     Dates: start: 20131126, end: 20131215
  4. 5-FLUOROURACIL [Suspect]
     Dates: start: 20131218
  5. 5-FLUOROURACIL [Suspect]
     Dates: start: 20140109
  6. 5-FLUOROURACIL [Suspect]
     Dates: start: 20140216
  7. BEVACIZUMAB [Suspect]
     Indication: COLON CANCER
     Dosage: 270 MG, 1 IN 2 WK
     Route: 042
     Dates: start: 20131016, end: 20131028
  8. BEVACIZUMAB [Suspect]
     Indication: RECTAL CANCER
     Dates: start: 20131105, end: 20131121
  9. BEVACIZUMAB [Suspect]
     Dates: start: 20131126, end: 20131215
  10. BEVACIZUMAB [Suspect]
     Dates: start: 20131218
  11. BEVACIZUMAB [Suspect]
     Dates: start: 20140109
  12. BEVACIZUMAB [Suspect]
     Dates: start: 20140216
  13. CIPROFLOXACIN [Suspect]
     Indication: COLON CANCER
     Dates: start: 20131016, end: 20131028
  14. CIPROFLOXACIN [Suspect]
     Indication: RECTAL CANCER
     Dates: start: 20131105, end: 20131215
  15. CIPROFLOXACIN [Suspect]
     Route: 042
     Dates: start: 20131218
  16. CIPROFLOXACIN [Suspect]
     Dates: start: 20140109
  17. CIPROFLOXACIN [Suspect]
     Dates: start: 20140216
  18. GLUTATHIONE [Concomitant]

REACTIONS (3)
  - Hypertension [Unknown]
  - Alanine aminotransferase increased [Unknown]
  - Aspartate aminotransferase increased [Unknown]
